FAERS Safety Report 8257707 (Version 5)
Quarter: 2013Q1

REPORT INFORMATION
  Report Type: Report from Study
  Country: DE (occurrence: DE)
  Receive Date: 20111121
  Receipt Date: 20130319
  Transmission Date: 20140127
  Serious: Yes (Hospitalization)
  Sender: FDA-Public Use
  Company Number: DE-PFIZER INC-2011219694

PATIENT
  Age: 51 Year
  Sex: Male
  Weight: 84 kg

DRUGS (3)
  1. TEMSIROLIMUS [Suspect]
     Dosage: UNK
     Dates: start: 20110526
  2. BENDAMUSTINE [Suspect]
     Dosage: UNK
     Dates: start: 20110525
  3. RITUXIMAB [Suspect]
     Dosage: UNK
     Dates: start: 20110524

REACTIONS (2)
  - Device related infection [Recovered/Resolved]
  - Soft tissue infection [Recovered/Resolved]
